FAERS Safety Report 4736436-9 (Version None)
Quarter: 2005Q3

REPORT INFORMATION
  Report Type: 
  Country: None (occurrence: None)
  Receive Date: 20050804
  Receipt Date: 20050719
  Transmission Date: 20060218
  Serious: Yes (Hospitalization)
  Sender: FDA-Public Use
  Company Number: CTI_0821_2005

PATIENT
  Age: 59 Year
  Sex: Male
  Weight: 74 kg

DRUGS (4)
  1. ZILEUTON [Suspect]
     Indication: NON-SMALL CELL LUNG CANCER
     Dosage: 600 MG QID PO
     Route: 048
     Dates: start: 20040331
  2. CARBOPLATIN [Suspect]
     Indication: NON-SMALL CELL LUNG CANCER
     Dosage: 729 MG IV
     Route: 042
     Dates: start: 20040331
  3. GEMCITABINE [Suspect]
     Indication: NON-SMALL CELL LUNG CANCER
     Dosage: 3690 MG IV
     Route: 042
     Dates: start: 20040331
  4. CELECOXIB [Suspect]
     Indication: NON-SMALL CELL LUNG CANCER
     Dosage: 10400 MG PO
     Route: 042
     Dates: start: 20040331

REACTIONS (7)
  - BLOOD SODIUM DECREASED [None]
  - DEHYDRATION [None]
  - GANGRENE [None]
  - INSOMNIA [None]
  - NEUTROPENIA [None]
  - ORAL INTAKE REDUCED [None]
  - THROMBOCYTOPENIA [None]
